FAERS Safety Report 21183917 (Version 2)
Quarter: 2025Q1

REPORT INFORMATION
  Report Type: Spontaneous
  Country: US (occurrence: US)
  Receive Date: 20220808
  Receipt Date: 20250109
  Transmission Date: 20250409
  Serious: No
  Sender: ORGANON
  Company Number: US-ORGANON-O2207USA001999

PATIENT
  Sex: Female
  Weight: 63.492 kg

DRUGS (1)
  1. NEXPLANON [Suspect]
     Active Substance: ETONOGESTREL
     Indication: Contraception
     Route: 059

REACTIONS (5)
  - Hypomenorrhoea [Not Recovered/Not Resolved]
  - Menometrorrhagia [Not Recovered/Not Resolved]
  - Menstruation irregular [Not Recovered/Not Resolved]
  - Product prescribing issue [Unknown]
  - Incorrect product administration duration [Unknown]
